FAERS Safety Report 6026377-1 (Version None)
Quarter: 2009Q1

REPORT INFORMATION
  Report Type: 
  Country: None (occurrence: None)
  Receive Date: 20090102
  Receipt Date: 20081224
  Transmission Date: 20090719
  Serious: Yes (Other)
  Sender: FDA-Public Use
  Company Number: PHHY2008GB33370

PATIENT
  Sex: Female

DRUGS (1)
  1. CLOZARIL [Suspect]
     Indication: SCHIZOPHRENIA
     Dosage: UNK
     Dates: start: 20081218

REACTIONS (5)
  - ABASIA [None]
  - HEART RATE INCREASED [None]
  - MALAISE [None]
  - MENTAL DISORDER [None]
  - POSTURE ABNORMAL [None]
